FAERS Safety Report 9228558 (Version 1)
Quarter: 2013Q2

REPORT INFORMATION
  Report Type: Spontaneous
  Country: US (occurrence: US)
  Receive Date: 20130412
  Receipt Date: 20130412
  Transmission Date: 20140414
  Serious: Yes (Hospitalization)
  Sender: FDA-Public Use
  Company Number: US-ROCHE-1211802

PATIENT
  Sex: Female

DRUGS (1)
  1. XELODA [Suspect]
     Indication: PRODUCT USED FOR UNKNOWN INDICATION
     Route: 048

REACTIONS (4)
  - Dizziness [Recovered/Resolved]
  - Eye disorder [Recovered/Resolved]
  - Neurological symptom [Recovered/Resolved]
  - Visual impairment [Recovered/Resolved]
